FAERS Safety Report 17446792 (Version 1)
Quarter: 2020Q1

REPORT INFORMATION
  Report Type: Spontaneous
  Country: GB (occurrence: GB)
  Receive Date: 20200221
  Receipt Date: 20200221
  Transmission Date: 20200409
  Serious: Yes (Hospitalization)
  Sender: FDA-Public Use
  Company Number: NVSC2020GB041336

PATIENT
  Age: 63 Year
  Sex: Female

DRUGS (2)
  1. URSODEOXYCHOLIC ACID [Suspect]
     Active Substance: URSODIOL
     Indication: DRUG-INDUCED LIVER INJURY
     Dosage: 750 MG, QD
     Route: 065
  2. RIFAMPICIN [Suspect]
     Active Substance: RIFAMPIN
     Indication: DRUG-INDUCED LIVER INJURY
     Dosage: 150 MG
     Route: 065

REACTIONS (7)
  - Pruritus [Unknown]
  - Hyperbilirubinaemia [Unknown]
  - Weight decreased [Unknown]
  - Lethargy [Unknown]
  - Disease progression [Unknown]
  - Decreased appetite [Unknown]
  - Product use in unapproved indication [Unknown]
